FAERS Safety Report 7865356-6 (Version None)
Quarter: 2011Q4

REPORT INFORMATION
  Report Type: 
  Country: None (occurrence: None)
  Receive Date: 20111028
  Receipt Date: 20101202
  Transmission Date: 20120403
  Serious: No
  Sender: FDA-Public Use
  Company Number: US-GLAXOSMITHKLINE-A0897422A

PATIENT
  Age: 84 Year
  Sex: Male

DRUGS (5)
  1. FLOMAX [Concomitant]
  2. DIURETIC [Concomitant]
  3. FUROSEMIDE INTENSOL [Concomitant]
  4. AVODART [Concomitant]
  5. ADVAIR DISKUS 100/50 [Suspect]
     Indication: EMPHYSEMA
     Dosage: 1PUFF TWICE PER DAY
     Route: 055
     Dates: start: 20091201

REACTIONS (2)
  - OEDEMA PERIPHERAL [None]
  - JOINT SWELLING [None]
